FAERS Safety Report 26099341 (Version 1)
Quarter: 2025Q4

REPORT INFORMATION
  Report Type: Report from Study
  Country: EU (occurrence: EU)
  Receive Date: 20251128
  Receipt Date: 20251128
  Transmission Date: 20260117
  Serious: Yes (Death)
  Sender: CELLTRION
  Company Number: EU-ROCHE-3469015

PATIENT

DRUGS (7)
  1. BEVACIZUMAB [Suspect]
     Active Substance: BEVACIZUMAB
     Indication: Hepatocellular carcinoma
     Dosage: 1200 MILLIGRAM
     Dates: start: 20220805
  2. ATEZOLIZUMAB [Suspect]
     Active Substance: ATEZOLIZUMAB
     Indication: Hepatocellular carcinoma
     Dosage: 1200 MILLIGRAM
     Route: 042
     Dates: start: 20220805
  3. METFORMIN HYDROCHLORIDE [Concomitant]
     Active Substance: METFORMIN HYDROCHLORIDE
     Dosage: EVERY 0.5 DAY
     Dates: start: 2006
  4. DAPAGLIFLOZIN [Concomitant]
     Active Substance: DAPAGLIFLOZIN
     Dosage: EVERY 1 DAY
     Dates: start: 2005
  5. LANTUS [Concomitant]
     Active Substance: INSULIN GLARGINE
     Dosage: EVERY 1 DAY
     Dates: start: 2005
  6. INDAPAMIDE\PERINDOPRIL ARGININE [Concomitant]
     Active Substance: INDAPAMIDE\PERINDOPRIL ARGININE
     Dosage: EVERY 1 DAY
     Dates: start: 2006
  7. ENTECAVIR [Concomitant]
     Active Substance: ENTECAVIR
     Dosage: EVERY 1 DAY
     Dates: start: 2005

REACTIONS (3)
  - Death [Fatal]
  - Abdominal pain [Recovered/Resolved]
  - Intentional product use issue [Unknown]

NARRATIVE: CASE EVENT DATE: 20231115
